FAERS Safety Report 23836198 (Version 7)
Quarter: 2025Q1

REPORT INFORMATION
  Report Type: Spontaneous
  Country: CA (occurrence: CA)
  Receive Date: 20240509
  Receipt Date: 20250219
  Transmission Date: 20250409
  Serious: Yes (Hospitalization, Other)
  Sender: PFIZER
  Company Number: CA-PFIZER INC-202300446756

PATIENT
  Age: 62 Year
  Sex: Male

DRUGS (26)
  1. ABRILADA [Suspect]
     Active Substance: ADALIMUMAB-AFZB
     Indication: Ankylosing spondylitis
     Route: 058
     Dates: start: 20240213
  2. ABRILADA [Suspect]
     Active Substance: ADALIMUMAB-AFZB
     Route: 058
     Dates: start: 20240423
  3. ABRILADA [Suspect]
     Active Substance: ADALIMUMAB-AFZB
     Route: 058
     Dates: start: 20240612
  4. ABRILADA [Suspect]
     Active Substance: ADALIMUMAB-AFZB
     Route: 058
     Dates: start: 20241217
  5. ABRILADA [Suspect]
     Active Substance: ADALIMUMAB-AFZB
     Route: 058
     Dates: start: 20250106
  6. ABRILADA [Suspect]
     Active Substance: ADALIMUMAB-AFZB
     Route: 058
     Dates: start: 20250121
  7. ABRILADA [Suspect]
     Active Substance: ADALIMUMAB-AFZB
     Route: 058
     Dates: start: 20250212
  8. BACLOFEN [Concomitant]
     Active Substance: BACLOFEN
  9. CEQUA [Concomitant]
     Active Substance: CYCLOSPORINE
  10. DEXLANSOPRAZOLE [Concomitant]
     Active Substance: DEXLANSOPRAZOLE
  11. FAMOTIDINE [Concomitant]
     Active Substance: FAMOTIDINE
  12. FENTANYL [Concomitant]
     Active Substance: FENTANYL
  13. HYDROMORPHONE [Concomitant]
     Active Substance: HYDROMORPHONE
  14. HYDROMORPHONE [Concomitant]
     Active Substance: HYDROMORPHONE
  15. HYDROXYZINE [Concomitant]
     Active Substance: HYDROXYZINE HYDROCHLORIDE
  16. LEMBOREXANT [Concomitant]
     Active Substance: LEMBOREXANT
  17. MOVANTIK [Concomitant]
     Active Substance: NALOXEGOL OXALATE
  18. ONDANSETRON [Concomitant]
     Active Substance: ONDANSETRON
  19. OXYCODONE [Concomitant]
     Active Substance: OXYCODONE
  20. PREDNISONE [Concomitant]
     Active Substance: PREDNISONE
     Dates: start: 2015
  21. QUININE [Concomitant]
     Active Substance: QUININE
  22. RIZATRIPTAN [Concomitant]
     Active Substance: RIZATRIPTAN
  23. TOPIRAMATE [Concomitant]
     Active Substance: TOPIRAMATE
  24. TAMSULOSIN [Concomitant]
     Active Substance: TAMSULOSIN
  25. TRAZODONE [Concomitant]
     Active Substance: TRAZODONE HYDROCHLORIDE
  26. ULORIC [Concomitant]
     Active Substance: FEBUXOSTAT

REACTIONS (2)
  - Hip arthroplasty [Recovered/Resolved]
  - Pneumonia [Recovered/Resolved with Sequelae]

NARRATIVE: CASE EVENT DATE: 20240101
